FAERS Safety Report 9058529 (Version 2)
Quarter: 2013Q2

REPORT INFORMATION
  Report Type: Spontaneous
  Country: DE (occurrence: DE)
  Receive Date: 20130211
  Receipt Date: 20130603
  Transmission Date: 20140414
  Serious: Yes (Life-Threatening, Hospitalization)
  Sender: FDA-Public Use
  Company Number: DE-JNJFOC-20130202623

PATIENT
  Age: 85 Year
  Sex: Female
  Weight: 65 kg

DRUGS (1)
  1. XARELTO [Suspect]
     Indication: PULMONARY EMBOLISM
     Route: 048
     Dates: start: 201211, end: 20121206

REACTIONS (4)
  - Blood bilirubin increased [Recovered/Resolved]
  - Syncope [Recovered/Resolved]
  - Fall [Recovered/Resolved]
  - Blood lactate dehydrogenase increased [Recovered/Resolved]
